FAERS Safety Report 12855864 (Version 1)
Quarter: 2016Q4

REPORT INFORMATION
  Report Type: Spontaneous
  Country: US (occurrence: None)
  Receive Date: 20161014
  Receipt Date: 20161014
  Transmission Date: 20170207
  Serious: Yes (Other)
  Sender: FDA-Public Use
  Company Number: US2016K5634LIT

PATIENT
  Age: 72 Year
  Sex: Male

DRUGS (6)
  1. LEVOTHYROXINE. [Suspect]
     Active Substance: LEVOTHYROXINE
  2. PARACETAMOL WORLD (PARACETAMOL) UNKNOWN [Suspect]
     Active Substance: ACETAMINOPHEN
  3. METOPROLOL WORLD (METOPROLOL) UNKNOWN [Suspect]
     Active Substance: METOPROLOL
  4. ASPIRIN. [Suspect]
     Active Substance: ASPIRIN
  5. MELOXICAM. [Suspect]
     Active Substance: MELOXICAM
  6. ENALAPRIL WORLD (ENALAPRIL) UNKNOWN [Suspect]
     Active Substance: ENALAPRIL

REACTIONS (1)
  - Porokeratosis [None]
